FAERS Safety Report 10179455 (Version 1)
Quarter: 2014Q2

REPORT INFORMATION
  Report Type: Spontaneous
  Country: JP (occurrence: JP)
  Receive Date: 20140519
  Receipt Date: 20140519
  Transmission Date: 20141212
  Serious: Yes (Other)
  Sender: FDA-Public Use
  Company Number: JP-SA-2014SA061906

PATIENT
  Sex: Male

DRUGS (3)
  1. ELPLAT [Suspect]
     Indication: GERM CELL CANCER
     Route: 041
  2. CALCIUM LEVOFOLINATE [Concomitant]
     Indication: GERM CELL CANCER
  3. FLUOROURACIL [Concomitant]
     Indication: GERM CELL CANCER

REACTIONS (1)
  - Acute myeloid leukaemia [Unknown]
